FAERS Safety Report 5223130-3 (Version None)
Quarter: 2007Q1

REPORT INFORMATION
  Report Type: 
  Country: None (occurrence: None)
  Receive Date: 20070129
  Receipt Date: 20070118
  Transmission Date: 20070707
  Serious: Yes (Other)
  Sender: FDA-Public Use
  Company Number: SE-PFIZER INC-2007005605

PATIENT
  Sex: Male

DRUGS (4)
  1. DETRUSITOL [Suspect]
     Dates: start: 20060601, end: 20060601
  2. XATRAL [Suspect]
     Route: 048
     Dates: start: 20060601, end: 20060622
  3. SYMBICORT [Concomitant]
     Route: 055
  4. NASONEX [Concomitant]

REACTIONS (2)
  - OEDEMA MOUTH [None]
  - PHARYNGEAL OEDEMA [None]
